FAERS Safety Report 14566310 (Version 1)
Quarter: 2018Q1

REPORT INFORMATION
  Report Type: Spontaneous
  Country: US (occurrence: US)
  Receive Date: 20180222
  Receipt Date: 20180222
  Transmission Date: 20180509
  Serious: No
  Sender: FDA-Public Use
  Company Number: None

PATIENT
  Age: 57 Year
  Sex: Female
  Weight: 63.5 kg

DRUGS (7)
  1. SERTRALINE [Concomitant]
     Active Substance: SERTRALINE HYDROCHLORIDE
  2. RANITIDDINE [Concomitant]
  3. LEVOTHYROXINE. [Concomitant]
     Active Substance: LEVOTHYROXINE
  4. QUETIAPINE ER 400MG TABLET [Suspect]
     Active Substance: QUETIAPINE
     Indication: SCHIZOPHRENIA
     Dosage: 400 MG 1 PILL IN MORNING 2 PILL AT BEDTIME MOUTH
     Route: 048
     Dates: start: 20180116
  5. AMLODIPINE [Concomitant]
     Active Substance: AMLODIPINE BESYLATE
  6. ARIPIPRAZOLE. [Concomitant]
     Active Substance: ARIPIPRAZOLE
  7. MONTELUKAST [Concomitant]
     Active Substance: MONTELUKAST SODIUM

REACTIONS (4)
  - Depression [None]
  - Anxiety [None]
  - Product substitution issue [None]
  - Insurance issue [None]
